FAERS Safety Report 23689522 (Version 1)
Quarter: 2024Q1

REPORT INFORMATION
  Report Type: Other
  Country: GR (occurrence: GR)
  Receive Date: 20240331
  Receipt Date: 20240331
  Transmission Date: 20240410
  Serious: Yes (Death, Life-Threatening, Hospitalization, Other)
  Sender: FDA-Public Use
  Company Number: GR-COOPER-2024-04-405

PATIENT
  Age: 52 Hour
  Sex: Male

DRUGS (15)
  1. MEROPENEM [Suspect]
     Active Substance: MEROPENEM
     Indication: Neonatal respiratory distress
     Dosage: UNK
     Route: 065
  2. MEROPENEM [Suspect]
     Active Substance: MEROPENEM
     Indication: Septic shock
  3. MEROPENEM [Suspect]
     Active Substance: MEROPENEM
     Indication: Neonatal asphyxia
  4. VANCOMYCIN [Suspect]
     Active Substance: VANCOMYCIN
     Indication: Septic shock
     Dosage: UNK
     Route: 065
  5. VANCOMYCIN [Suspect]
     Active Substance: VANCOMYCIN
     Indication: Neonatal asphyxia
  6. VANCOMYCIN [Suspect]
     Active Substance: VANCOMYCIN
     Indication: Neonatal respiratory distress
  7. AMPICILLIN [Suspect]
     Active Substance: AMPICILLIN
     Indication: Neonatal respiratory distress
     Dosage: UNK
     Route: 065
  8. AMPICILLIN [Suspect]
     Active Substance: AMPICILLIN
     Indication: Septic shock
  9. AMPICILLIN [Suspect]
     Active Substance: AMPICILLIN
     Indication: Neonatal asphyxia
  10. AMIKACIN [Suspect]
     Active Substance: AMIKACIN
     Indication: Neonatal respiratory distress
     Dosage: UNK
     Route: 065
  11. AMIKACIN [Suspect]
     Active Substance: AMIKACIN
     Indication: Septic shock
  12. AMIKACIN [Suspect]
     Active Substance: AMIKACIN
     Indication: Neonatal asphyxia
  13. NITRIC OXIDE [Suspect]
     Active Substance: NITRIC OXIDE
     Indication: Neonatal respiratory distress
     Dosage: UNK
     Route: 065
  14. NITRIC OXIDE [Suspect]
     Active Substance: NITRIC OXIDE
     Indication: Neonatal asphyxia
  15. NITRIC OXIDE [Suspect]
     Active Substance: NITRIC OXIDE
     Indication: Septic shock

REACTIONS (4)
  - Leukocytosis [Fatal]
  - Thrombocytopenia neonatal [Fatal]
  - Drug ineffective [Fatal]
  - Off label use [Fatal]
